FAERS Safety Report 11992542 (Version 1)
Quarter: 2016Q1

REPORT INFORMATION
  Report Type: Spontaneous
  Country: US (occurrence: US)
  Receive Date: 20160203
  Receipt Date: 20160203
  Transmission Date: 20160526
  Serious: No
  Sender: FDA-Public Use
  Company Number: US-UCBSA-2015008988

PATIENT
  Sex: Female

DRUGS (3)
  1. KEPPRA [Suspect]
     Active Substance: LEVETIRACETAM
     Dosage: 1500 MG AT 6 TH WEEK GROWTH SPURT
  2. KEPPRA [Suspect]
     Active Substance: LEVETIRACETAM
     Indication: PRODUCT USED FOR UNKNOWN INDICATION
     Dosage: 1000 MG
  3. KEPPRA [Suspect]
     Active Substance: LEVETIRACETAM
     Dosage: UPPED TO 2000 MG AT 8 WEEKS

REACTIONS (3)
  - Suppressed lactation [Unknown]
  - Breast feeding [Unknown]
  - Seizure [Unknown]

NARRATIVE: CASE EVENT DATE: 2015
